FAERS Safety Report 17012407 (Version 1)
Quarter: 2019Q4

REPORT INFORMATION
  Report Type: Report from Study
  Country: NL (occurrence: NL)
  Receive Date: 20191108
  Receipt Date: 20191108
  Transmission Date: 20200122
  Serious: Yes (Hospitalization, Other)
  Sender: FDA-Public Use
  Company Number: NL-INTERCEPT-CT2019000141

PATIENT
  Age: 45 Year
  Sex: Female
  Weight: 66 kg

DRUGS (10)
  1. ETHINYLESTRADIOL W/LEVONORGESTREL [Concomitant]
     Active Substance: ETHINYL ESTRADIOL\LEVONORGESTREL
     Indication: ORAL CONTRACEPTION
     Dosage: 200/100 MCG, ACCORDING TO SCHEDULE; 3 WEEKS EVERY DAY THEN ONE WEEK STOP
     Route: 048
  2. COLESEVELAM [Concomitant]
     Active Substance: COLESEVELAM
     Indication: PRURITUS
     Dosage: 625 MG, 4-6 TIMES A DAY
     Route: 048
     Dates: start: 20180608
  3. SIMVASTATINE [Concomitant]
     Active Substance: SIMVASTATIN
     Indication: HYPERCHOLESTEROLAEMIA
     Dosage: 40 MG, QD
     Route: 048
     Dates: start: 20180209
  4. LACTULOSE. [Concomitant]
     Active Substance: LACTULOSE
     Indication: CONSTIPATION
     Dosage: 5 ML, PRN
     Route: 048
     Dates: start: 20180212
  5. IBUPROFEN. [Concomitant]
     Active Substance: IBUPROFEN
     Indication: ARTHRITIS
     Dosage: 600 MG, TID
     Route: 048
     Dates: start: 2014
  6. UDCA [Concomitant]
     Active Substance: URSODIOL
     Indication: PRIMARY BILIARY CHOLANGITIS
     Dosage: 1000 MG, QD
     Dates: start: 2013
  7. PREDNISON [Concomitant]
     Active Substance: PREDNISONE
     Indication: ARTHRITIS
     Dosage: 5 MG, QD
     Route: 048
     Dates: start: 201712
  8. HYDROXYZINE [Concomitant]
     Active Substance: HYDROXYZINE HYDROCHLORIDE
     Indication: PRIMARY BILIARY CHOLANGITIS
     Dosage: 10 MG, TID
     Route: 048
     Dates: start: 2013
  9. OMEPRAZOL [Concomitant]
     Active Substance: OMEPRAZOLE
     Indication: PROPHYLAXIS
     Dosage: 20 MG, QD
     Route: 048
     Dates: start: 20180209
  10. OBETICHOLIC ACID [Suspect]
     Active Substance: OBETICHOLIC ACID
     Indication: PRIMARY BILIARY CHOLANGITIS
     Dosage: 5 MG, QD
     Route: 048
     Dates: start: 20180404, end: 20180629

REACTIONS (2)
  - Drug-induced liver injury [Recovered/Resolved]
  - Cholelithiasis [Recovered/Resolved]

NARRATIVE: CASE EVENT DATE: 20180622
